FAERS Safety Report 19188407 (Version 2)
Quarter: 2021Q2

REPORT INFORMATION
  Report Type: Spontaneous
  Country: JP (occurrence: JP)
  Receive Date: 20210428
  Receipt Date: 20210524
  Transmission Date: 20210717
  Serious: Yes (Hospitalization)
  Sender: FDA-Public Use
  Company Number: JP-IPSEN BIOPHARMACEUTICALS, INC.-2019-25115

PATIENT
  Age: 74 Year
  Sex: Female
  Weight: 66 kg

DRUGS (1)
  1. SOMATULINE AUTOGEL [Suspect]
     Active Substance: LANREOTIDE ACETATE
     Indication: ACROMEGALY
     Dosage: DOSE NOT REPORTED
     Route: 058
     Dates: start: 2014

REACTIONS (3)
  - Bile duct stone [Recovered/Resolved]
  - Cholelithiasis [Recovered/Resolved]
  - Hepatic function abnormal [Recovered/Resolved]

NARRATIVE: CASE EVENT DATE: 2018
